FAERS Safety Report 4332890-5 (Version None)
Quarter: 2004Q1

REPORT INFORMATION
  Report Type: 
  Country: None (occurrence: None)
  Receive Date: 20040330
  Receipt Date: 20040323
  Transmission Date: 20041129
  Serious: Yes (Death)
  Sender: FDA-Public Use
  Company Number: 2004UW05594

PATIENT
  Age: 45 Year
  Sex: Male
  Weight: 127.0072 kg

DRUGS (1)
  1. CRESTOR [Suspect]
     Dosage: 10 MG PO
     Route: 048
     Dates: start: 20040301

REACTIONS (3)
  - ARRHYTHMIA [None]
  - FALL [None]
  - SUDDEN DEATH [None]
